FAERS Safety Report 9234460 (Version 1)
Quarter: 2013Q2

REPORT INFORMATION
  Report Type: Spontaneous
  Country: US (occurrence: US)
  Receive Date: 20130416
  Receipt Date: 20130416
  Transmission Date: 20140414
  Serious: No
  Sender: FDA-Public Use
  Company Number: US-BANPHARM-20120144

PATIENT
  Age: 45 Year
  Sex: Male
  Weight: 88.43 kg

DRUGS (2)
  1. ALEVE LIQUID GELS 220 MG [Suspect]
     Indication: ARTHRALGIA
     Dosage: 1- 2 DF, QD,
     Route: 048
     Dates: start: 20120824
  2. LAMICTAL 100 MG [Concomitant]

REACTIONS (1)
  - Drug screen positive [Unknown]
